FAERS Safety Report 4953002-0 (Version None)
Quarter: 2006Q1

REPORT INFORMATION
  Report Type: 
  Country: None (occurrence: None)
  Receive Date: 20060324
  Receipt Date: 20060126
  Transmission Date: 20060701
  Serious: Yes (Life-Threatening, Hospitalization, Disabling, Other)
  Sender: FDA-Public Use
  Company Number: US-GLAXOSMITHKLINE-A0591136A

PATIENT
  Age: 75 Year
  Sex: Female

DRUGS (7)
  1. PAXIL [Suspect]
     Indication: DEPRESSION
     Dosage: 20MG PER DAY
     Route: 048
     Dates: start: 20041201, end: 20051201
  2. VERAPAMIL EXTENDED-RELEASE [Concomitant]
     Indication: HYPERTENSION
  3. ZANTAC [Concomitant]
     Dosage: 150MG TWICE PER DAY
     Route: 048
  4. MULTIVITAMIN [Concomitant]
  5. CALCIUM GLUCONATE [Concomitant]
  6. DEPO-ESTRADIOL [Concomitant]
     Indication: HORMONE REPLACEMENT THERAPY
  7. IMODIUM [Concomitant]

REACTIONS (17)
  - ARTHRALGIA [None]
  - DIZZINESS [None]
  - DRUG WITHDRAWAL SYNDROME [None]
  - FEELING ABNORMAL [None]
  - HALLUCINATION, AUDITORY [None]
  - HEADACHE [None]
  - HOT FLUSH [None]
  - MALAISE [None]
  - NIGHTMARE [None]
  - PAIN [None]
  - PARAESTHESIA [None]
  - PRURITUS [None]
  - SUICIDAL IDEATION [None]
  - THINKING ABNORMAL [None]
  - TINNITUS [None]
  - VISION BLURRED [None]
  - VOMITING [None]
